FAERS Safety Report 9980702 (Version 1)
Quarter: 2014Q1

REPORT INFORMATION
  Report Type: Spontaneous
  Country: CA (occurrence: CA)
  Receive Date: 20140307
  Receipt Date: 20140307
  Transmission Date: 20141002
  Serious: Yes (Hospitalization, Other)
  Sender: FDA-Public Use
  Company Number: CA-AMGEN-CANSP2014016005

PATIENT
  Age: 60 Year
  Sex: Male

DRUGS (5)
  1. ENBREL [Suspect]
     Indication: ANKYLOSING SPONDYLITIS
     Dosage: 50 MG, UNK
     Route: 065
     Dates: start: 20130906
  2. NAPROXEN [Concomitant]
     Dosage: UNK
  3. AMITRIPTYLINE [Concomitant]
     Dosage: UNK
  4. COVERSYL                           /00790702/ [Concomitant]
     Dosage: UNK
  5. LIPITOR [Concomitant]
     Dosage: UNK

REACTIONS (4)
  - Dysstasia [Recovered/Resolved]
  - Dizziness [Recovered/Resolved]
  - Cerebrovascular accident [Recovered/Resolved]
  - Influenza [Recovered/Resolved]
